FAERS Safety Report 18504728 (Version 2)
Quarter: 2020Q4

REPORT INFORMATION
  Report Type: Spontaneous
  Country: US (occurrence: US)
  Receive Date: 20201115
  Receipt Date: 20201230
  Transmission Date: 20210114
  Serious: No
  Sender: FDA-Public Use
  Company Number: US-ASTRAZENECA-2020SF39476

PATIENT
  Age: 58 Year
  Sex: Female
  Weight: 89.8 kg

DRUGS (2)
  1. BYDUREON BCISE [Suspect]
     Active Substance: EXENATIDE
     Indication: TYPE 2 DIABETES MELLITUS
     Dosage: 2 ONCE A WEEK
     Route: 058
     Dates: start: 2018
  2. BYDUREON [Suspect]
     Active Substance: EXENATIDE
     Indication: TYPE 2 DIABETES MELLITUS
     Dosage: 2 MG ONCE A WEEK, STOPPED TAKING IT FOR ABOUT 8 MONTHS SOMETIME IN 2017 OR 2018.
     Route: 058

REACTIONS (8)
  - Insurance issue [Unknown]
  - Glycosylated haemoglobin increased [Unknown]
  - Injection site extravasation [Unknown]
  - Intentional device misuse [Not Recovered/Not Resolved]
  - Wrong technique in device usage process [Unknown]
  - Product use issue [Unknown]
  - Device leakage [Unknown]
  - Weight decreased [Unknown]

NARRATIVE: CASE EVENT DATE: 2018
